FAERS Safety Report 10450443 (Version 1)
Quarter: 2014Q3

REPORT INFORMATION
  Report Type: Spontaneous
  Country: US (occurrence: US)
  Receive Date: 20140912
  Receipt Date: 20140912
  Transmission Date: 20150326
  Serious: No
  Sender: FDA-Public Use
  Company Number: US-ASTRAZENECA-2014SE66237

PATIENT
  Age: 71 Year
  Sex: Male
  Weight: 106.6 kg

DRUGS (4)
  1. REMICADE [Concomitant]
     Active Substance: INFLIXIMAB
     Indication: COLITIS
     Dosage: 3 HR INJECTION UNK
  2. ASACOL [Concomitant]
     Active Substance: MESALAMINE
     Dosage: UNKNOWN
  3. 20 MEDICATIONS [Concomitant]
     Dosage: UNKNOWN
  4. SYMBICORT [Suspect]
     Active Substance: BUDESONIDE\FORMOTEROL FUMARATE DIHYDRATE
     Indication: CHRONIC OBSTRUCTIVE PULMONARY DISEASE
     Dosage: 160/4.5 MCG, 2 PUFFS BID
     Route: 055
     Dates: start: 20140901

REACTIONS (3)
  - Sleep disorder [Unknown]
  - Dyspnoea [Unknown]
  - Sensation of foreign body [Unknown]

NARRATIVE: CASE EVENT DATE: 201409
